FAERS Safety Report 7152464-0 (Version None)
Quarter: 2010Q4

REPORT INFORMATION
  Report Type: 
  Country: None (occurrence: None)
  Receive Date: 20101208
  Receipt Date: 20101208
  Transmission Date: 20110411
  Serious: Yes (Hospitalization)
  Sender: FDA-Public Use
  Company Number: None

PATIENT
  Age: 39 Year
  Sex: Female
  Weight: 76.7486 kg

DRUGS (2)
  1. IXABEPILONE [Suspect]
     Indication: METASTATIC NEOPLASM
     Dosage: 40 MG/M2 EVERY 21 DAYS IV
     Route: 042
     Dates: start: 20101104, end: 20101206
  2. DASATIMIB [Suspect]
     Indication: METASTATIC NEOPLASM
     Dosage: 100 MG DAILY PO
     Route: 048
     Dates: start: 20101104, end: 20101206

REACTIONS (2)
  - HAEMOPTYSIS [None]
  - PNEUMONIA [None]
